FAERS Safety Report 14442238 (Version 1)
Quarter: 2018Q1

REPORT INFORMATION
  Report Type: Spontaneous
  Country: US (occurrence: US)
  Receive Date: 20180125
  Receipt Date: 20180125
  Transmission Date: 20180509
  Serious: Yes (Other)
  Sender: FDA-Public Use
  Company Number: US-SUNOVION-2018SUN000245

PATIENT
  Age: 42 Year
  Sex: Male
  Weight: 63.49 kg

DRUGS (4)
  1. LATUDA [Suspect]
     Active Substance: LURASIDONE HYDROCHLORIDE
     Indication: BIPOLAR DISORDER
     Dosage: 80 MG, QD
     Route: 048
     Dates: start: 20171120
  2. VISTARIL [Interacting]
     Active Substance: HYDROXYZINE PAMOATE
     Indication: ANXIETY
     Dosage: 25- 50 MG, TID, PRN
     Route: 048
  3. LATUDA [Interacting]
     Active Substance: LURASIDONE HYDROCHLORIDE
     Dosage: 120 MG, QD (1 TAB QHS WITH FOOD/PO)
     Route: 048
  4. BENADRYL [Concomitant]
     Active Substance: DIPHENHYDRAMINE HYDROCHLORIDE
     Dosage: UNK

REACTIONS (8)
  - Memory impairment [Not Recovered/Not Resolved]
  - Aggression [Unknown]
  - Homicidal ideation [Unknown]
  - Drug interaction [Unknown]
  - Mood swings [Not Recovered/Not Resolved]
  - Feeling abnormal [Unknown]
  - Cognitive disorder [Not Recovered/Not Resolved]
  - Insomnia [Not Recovered/Not Resolved]

NARRATIVE: CASE EVENT DATE: 201801
